FAERS Safety Report 12618635 (Version 1)
Quarter: 2016Q3

REPORT INFORMATION
  Report Type: Spontaneous
  Country: CN (occurrence: CN)
  Receive Date: 20160803
  Receipt Date: 20160803
  Transmission Date: 20161109
  Serious: Yes (Hospitalization, Other)
  Sender: FDA-Public Use
  Company Number: PHHY2016CN104275

PATIENT
  Age: 59 Year
  Sex: Male

DRUGS (3)
  1. METFORMIN [Concomitant]
     Active Substance: METFORMIN HYDROCHLORIDE
     Indication: PRODUCT USED FOR UNKNOWN INDICATION
     Dosage: 0.5 G, TID
     Route: 048
  2. MITIGLINIDE [Concomitant]
     Active Substance: MITIGLINIDE
     Indication: PRODUCT USED FOR UNKNOWN INDICATION
     Dosage: 10 MG, TID
     Route: 048
  3. LESCOL [Suspect]
     Active Substance: FLUVASTATIN SODIUM
     Indication: PRODUCT USED FOR UNKNOWN INDICATION
     Dosage: 80 MG, QD
     Route: 048
     Dates: start: 20160607

REACTIONS (4)
  - Road traffic accident [Unknown]
  - Liver function test increased [Unknown]
  - Joint dislocation [Unknown]
  - Rib fracture [Unknown]

NARRATIVE: CASE EVENT DATE: 20160619
